FAERS Safety Report 4385529-7 (Version None)
Quarter: 2004Q2

REPORT INFORMATION
  Report Type: 
  Country: None (occurrence: None)
  Receive Date: 20040622
  Receipt Date: 20040607
  Transmission Date: 20050107
  Serious: Yes (Other)
  Sender: FDA-Public Use
  Company Number: 207003

PATIENT
  Age: 27 Year
  Sex: Female
  Weight: 90.7 kg

DRUGS (3)
  1. RAPTIVA [Suspect]
     Indication: PSORIASIS
     Dosage: 1/WEEK, SUBCUTANEOUS
     Route: 058
     Dates: end: 20040520
  2. MAXZIDE [Concomitant]
  3. IRON (IRON NOS) [Concomitant]

REACTIONS (4)
  - ABORTION SPONTANEOUS [None]
  - DRUG EXPOSURE DURING PREGNANCY [None]
  - STRESS SYMPTOMS [None]
  - WEIGHT INCREASED [None]
